FAERS Safety Report 12076625 (Version 1)
Quarter: 2016Q1

REPORT INFORMATION
  Report Type: Spontaneous
  Country: US (occurrence: US)
  Receive Date: 20160215
  Receipt Date: 20160215
  Transmission Date: 20160526
  Serious: No
  Sender: FDA-Public Use
  Company Number: US-BAYER-2016-026455

PATIENT
  Sex: Female
  Weight: 65.76 kg

DRUGS (2)
  1. MIRALAX [Suspect]
     Active Substance: POLYETHYLENE GLYCOL 3350
     Indication: CONSTIPATION
     Dosage: 2-3 DF, QD
     Route: 048
     Dates: start: 201602
  2. MIRALAX [Suspect]
     Active Substance: POLYETHYLENE GLYCOL 3350
     Indication: DIVERTICULITIS

REACTIONS (4)
  - Off label use [None]
  - Product use issue [None]
  - Infrequent bowel movements [None]
  - Drug ineffective [None]

NARRATIVE: CASE EVENT DATE: 201602
